FAERS Safety Report 8227979-4 (Version None)
Quarter: 2012Q1

REPORT INFORMATION
  Report Type: 
  Country: None (occurrence: None)
  Receive Date: 20120322
  Receipt Date: 20120315
  Transmission Date: 20120608
  Serious: Yes (Other)
  Sender: FDA-Public Use
  Company Number: PHHY2012GB022878

PATIENT
  Age: 23 Year
  Sex: Male
  Weight: 90 kg

DRUGS (4)
  1. GABAPENTIN [Suspect]
     Indication: NEURALGIA
     Dosage: 50 MG, QD
     Route: 048
     Dates: start: 20120227, end: 20120229
  2. VALPROIC ACID [Concomitant]
     Indication: EPILEPSY
     Dosage: 300 M, QD
     Route: 048
     Dates: start: 20090101
  3. TRAMADOL HCL [Concomitant]
     Indication: PAIN
     Dosage: 50 MG, TID
     Route: 048
     Dates: start: 20120220
  4. VALPROIC ACID [Concomitant]
     Dosage: 500 MG, QD
     Route: 048

REACTIONS (1)
  - VIITH NERVE PARALYSIS [None]
